FAERS Safety Report 26133894 (Version 1)
Quarter: 2025Q4

REPORT INFORMATION
  Report Type: Other
  Country: EU (occurrence: EU)
  Receive Date: 20251209
  Receipt Date: 20251209
  Transmission Date: 20260117
  Serious: Yes (Hospitalization)
  Sender: ZYDUS PHARM
  Company Number: None

PATIENT

DRUGS (6)
  1. PEMETREXED [Suspect]
     Active Substance: PEMETREXED
     Indication: Metastatic bronchial carcinoma
     Dosage: 675 MILLIGRAM 1 CYCLICAL
     Route: 042
     Dates: start: 20250716, end: 20251014
  2. KEYTRUDA [Suspect]
     Active Substance: PEMBROLIZUMAB
     Indication: Metastatic bronchial carcinoma
     Dosage: 200 MILLIGRAM 1 CYCLICAL
     Route: 042
     Dates: start: 20250716, end: 20251014
  3. ARANESP [Concomitant]
     Active Substance: DARBEPOETIN ALFA
     Indication: Anaemia
     Dosage: 500 MILLIGRAM EVERY 3 WEEK
     Route: 058
     Dates: start: 20250827
  4. HYDROCORTISONE [Concomitant]
     Active Substance: HYDROCORTISONE
     Indication: Secondary adrenocortical insufficiency
     Dosage: 10 MILLIGRAM EVERY 12 HRS
     Route: 048
     Dates: start: 20250716
  5. FOLIC ACID [Concomitant]
     Active Substance: FOLIC ACID
     Indication: Vitamin supplementation
     Dosage: 0.4 MILLIGRAM, QD
     Route: 048
     Dates: start: 20250613
  6. CYANOCOBALAMIN [Concomitant]
     Active Substance: CYANOCOBALAMIN
     Indication: Secondary adrenocortical insufficiency
     Dosage: 2 MILLIGRAM 1 CYCLICAL
     Route: 048
     Dates: start: 202507

REACTIONS (1)
  - Small intestinal perforation [Recovering/Resolving]

NARRATIVE: CASE EVENT DATE: 20251103
